FAERS Safety Report 4535492-0 (Version None)
Quarter: 2004Q4

REPORT INFORMATION
  Report Type: 
  Country: None (occurrence: None)
  Receive Date: 20041222
  Receipt Date: 20041210
  Transmission Date: 20050328
  Serious: Yes (Death, Hospitalization)
  Sender: FDA-Public Use
  Company Number: SE-MERCK-0412SWE00018

PATIENT
  Age: 83 Year
  Sex: Female

DRUGS (10)
  1. VIOXX [Suspect]
     Indication: OSTEOARTHRITIS
     Route: 048
     Dates: start: 20040209, end: 20040918
  2. VIOXX [Suspect]
     Route: 048
     Dates: start: 20040209, end: 20040918
  3. LEVOTHYROXINE SODIUM [Concomitant]
     Route: 048
  4. BISOPROLOL [Concomitant]
     Route: 048
  5. PREDNISOLONE [Concomitant]
     Route: 048
  6. FUROSEMIDE [Concomitant]
     Route: 048
  7. LEVOMEPROMAZINE [Concomitant]
     Route: 048
  8. FERROUS SULFATE [Concomitant]
     Route: 048
  9. ACETAMINOPHEN AND PROPOXYPHENE HYDROCHLORIDE [Concomitant]
     Route: 048
  10. SERTRALINE HYDROCHLORIDE [Concomitant]
     Route: 048

REACTIONS (3)
  - ACUTE MYOCARDIAL INFARCTION [None]
  - ANAEMIA [None]
  - CARDIAC FAILURE ACUTE [None]
